FAERS Safety Report 14187535 (Version 1)
Quarter: 2017Q4

REPORT INFORMATION
  Report Type: Spontaneous
  Country: US (occurrence: None)
  Receive Date: 20171113
  Receipt Date: 20171113
  Transmission Date: 20180321
  Serious: Yes (Death)
  Sender: FDA-Public Use
  Company Number: None

PATIENT
  Age: 52 Year
  Sex: Male

DRUGS (2)
  1. CYCLOSPORINE MODIFIED 100MG [Suspect]
     Active Substance: CYCLOSPORINE
     Indication: PROTEINURIA
     Dosage: FREQUENCY - 2 CAP TWICE DAILY
     Route: 048
     Dates: start: 20171010
  2. CYCLOSPORINE MODIFIED 100MG [Suspect]
     Active Substance: CYCLOSPORINE
     Indication: HAEMATURIA
     Dosage: FREQUENCY - 2 CAP TWICE DAILY
     Route: 048
     Dates: start: 20171010

REACTIONS (1)
  - Death [None]

NARRATIVE: CASE EVENT DATE: 20171111
